FAERS Safety Report 8303688-8 (Version None)
Quarter: 2012Q2

REPORT INFORMATION
  Report Type: 
  Country: None (occurrence: None)
  Receive Date: 20120423
  Receipt Date: 20120417
  Transmission Date: 20120825
  Serious: Yes (Other)
  Sender: FDA-Public Use
  Company Number: US-PFIZER INC-2011312720

PATIENT
  Sex: Female

DRUGS (2)
  1. CHANTIX [Suspect]
     Indication: SMOKING CESSATION THERAPY
     Dosage: UNK
     Dates: start: 20080730, end: 20081101
  2. CHANTIX [Suspect]
     Dosage: UNK
     Dates: start: 20090129, end: 20090501

REACTIONS (10)
  - IRRITABILITY [None]
  - INSOMNIA [None]
  - BIPOLAR DISORDER [None]
  - ABNORMAL DREAMS [None]
  - ANXIETY [None]
  - BORDERLINE PERSONALITY DISORDER [None]
  - MOOD SWINGS [None]
  - SUICIDAL IDEATION [None]
  - DEPRESSION [None]
  - AGGRESSION [None]
